FAERS Safety Report 16047925 (Version 1)
Quarter: 2019Q1

REPORT INFORMATION
  Report Type: Report from Study
  Country: US (occurrence: US)
  Receive Date: 20190307
  Receipt Date: 20190307
  Transmission Date: 20190418
  Serious: Yes (Hospitalization)
  Sender: FDA-Public Use
  Company Number: PHHO2015US011779

PATIENT
  Age: 66 Year
  Sex: Male
  Weight: 97.52 kg

DRUGS (30)
  1. ZORTRESS [Suspect]
     Active Substance: EVEROLIMUS
     Dosage: 0.75 MG, BID
     Route: 048
     Dates: start: 20150713
  2. ZORTRESS [Suspect]
     Active Substance: EVEROLIMUS
     Dosage: 1.00 MG, BID
     Route: 048
     Dates: start: 20130724, end: 20130729
  3. ZORTRESS [Suspect]
     Active Substance: EVEROLIMUS
     Dosage: 1.25 MG, BID
     Route: 048
     Dates: start: 20140112, end: 20140821
  4. METOPROLOL TARTRATE. [Concomitant]
     Active Substance: METOPROLOL TARTRATE
     Indication: HYPERTENSION
     Dosage: 50 MG, BID
     Route: 048
     Dates: start: 20130111
  5. NITROSTAT [Concomitant]
     Active Substance: NITROGLYCERIN
     Indication: MYOCARDIAL INFARCTION
  6. OMEPRAZOLE. [Concomitant]
     Active Substance: OMEPRAZOLE
     Indication: GASTROOESOPHAGEAL REFLUX DISEASE
     Dosage: 40 MG, BID
     Route: 048
     Dates: start: 20130111
  7. ZORTRESS [Suspect]
     Active Substance: EVEROLIMUS
     Dosage: 0.75 MG, BID
     Route: 048
     Dates: start: 20130716, end: 20130723
  8. ZORTRESS [Suspect]
     Active Substance: EVEROLIMUS
     Dosage: 1.75 MG, BID
     Route: 048
     Dates: start: 20131026, end: 20140111
  9. ZORTRESS [Suspect]
     Active Substance: EVEROLIMUS
     Dosage: 2.75 MG, (1.25 MG/1.5 MG BID)
     Route: 048
     Dates: start: 20140822, end: 20150705
  10. TACROLIMUS. [Suspect]
     Active Substance: TACROLIMUS
     Dosage: 1.5 MG, QD (1.0/1.5 MG BID)
     Route: 048
     Dates: start: 20140109
  11. TACROLIMUS. [Suspect]
     Active Substance: TACROLIMUS
     Dosage: 1.0 MG, BID
     Route: 048
     Dates: start: 20130826, end: 20140109
  12. CLONIDINE. [Concomitant]
     Active Substance: CLONIDINE
     Indication: HYPERTENSION
     Dosage: 0.3 MG, TID
     Route: 048
     Dates: start: 20141009
  13. PLAVIX [Concomitant]
     Active Substance: CLOPIDOGREL BISULFATE
     Indication: CORONARY ARTERY DISEASE
     Dosage: 75 MG, QD
     Route: 048
     Dates: start: 20110308
  14. FENOFIBRATE. [Concomitant]
     Active Substance: FENOFIBRATE
     Indication: DYSLIPIDAEMIA
     Dosage: 145 MG, QD
     Route: 048
     Dates: start: 20150417
  15. ZORTRESS [Suspect]
     Active Substance: EVEROLIMUS
     Indication: RENAL TRANSPLANT
     Dosage: 0.75 MG, BID
     Route: 048
     Dates: start: 20130704, end: 20130711
  16. ZORTRESS [Suspect]
     Active Substance: EVEROLIMUS
     Dosage: 1.50 MG, BID
     Route: 048
     Dates: start: 20130909, end: 20131025
  17. PLAVIX [Concomitant]
     Active Substance: CLOPIDOGREL BISULFATE
     Indication: TRANSIENT ISCHAEMIC ATTACK
  18. LOSARTAN. [Concomitant]
     Active Substance: LOSARTAN
     Indication: HYPERTENSION
     Dosage: 25 MG, QD
     Route: 048
     Dates: start: 20130620
  19. NITROSTAT [Concomitant]
     Active Substance: NITROGLYCERIN
     Indication: ANGINA PECTORIS
     Dosage: 0.4 MG, PRN
     Route: 060
     Dates: start: 20130111
  20. ZORTRESS [Suspect]
     Active Substance: EVEROLIMUS
     Dosage: 1.25 MG, BID
     Route: 048
     Dates: start: 20130730, end: 20130908
  21. TACROLIMUS. [Suspect]
     Active Substance: TACROLIMUS
     Indication: RENAL TRANSPLANT
     Dosage: 1.0 MG, BID
     Route: 048
     Dates: start: 20130704, end: 20130812
  22. MYFORTIC [Suspect]
     Active Substance: MYCOPHENOLATE SODIUM
     Indication: RENAL TRANSPLANT
     Dosage: 540 MG, BID
     Route: 048
     Dates: start: 20130703, end: 20130730
  23. DULOXETINE. [Concomitant]
     Active Substance: DULOXETINE
     Indication: DEPRESSION
     Dosage: 60 MG, QD
     Route: 048
     Dates: start: 20140306
  24. JANUVIA [Concomitant]
     Active Substance: SITAGLIPTIN PHOSPHATE
     Indication: TYPE 2 DIABETES MELLITUS
     Dosage: 100 MG, QD
     Route: 048
     Dates: start: 20140306
  25. OXYCODONE [Concomitant]
     Active Substance: OXYCODONE
     Indication: BACK PAIN
     Dosage: 5 MG, AS DIRECTED
     Route: 048
     Dates: start: 20150427
  26. TRAZODONE [Concomitant]
     Active Substance: TRAZODONE HYDROCHLORIDE
     Indication: DEPRESSION
     Dosage: 200 MG, QHS
     Route: 048
     Dates: start: 20130111
  27. ZORTRESS [Suspect]
     Active Substance: EVEROLIMUS
     Dosage: 1.25 MG, BID
     Route: 048
     Dates: start: 20130712, end: 20130715
  28. TACROLIMUS. [Suspect]
     Active Substance: TACROLIMUS
     Dosage: 1.5 MG (0.5 MG AM AND 1.0 MG PM), QD
     Route: 048
     Dates: start: 20130812, end: 20130825
  29. SIMVASTATIN. [Concomitant]
     Active Substance: SIMVASTATIN
     Indication: DYSLIPIDAEMIA
     Dosage: 10 MG, QD
     Route: 048
     Dates: start: 20130609
  30. LANTUS [Concomitant]
     Active Substance: INSULIN GLARGINE
     Indication: TYPE 2 DIABETES MELLITUS
     Dosage: 10 U, QHS
     Route: 058
     Dates: start: 20150130

REACTIONS (2)
  - Endocarditis [Recovering/Resolving]
  - Klebsiella bacteraemia [Recovering/Resolving]

NARRATIVE: CASE EVENT DATE: 20150701
